FAERS Safety Report 23825856 (Version 1)
Quarter: 2024Q2

REPORT INFORMATION
  Report Type: Spontaneous
  Country: US (occurrence: None)
  Receive Date: 20240506
  Receipt Date: 20240506
  Transmission Date: 20240716
  Serious: Yes (Hospitalization)
  Sender: FDA-Public Use
  Company Number: None

PATIENT
  Age: 61 Year
  Sex: Female
  Weight: 75 kg

DRUGS (2)
  1. INSULIN GLARGINE [Suspect]
     Active Substance: INSULIN GLARGINE
     Indication: Diabetes mellitus
     Dosage: OTHER FREQUENCY : AM;?
     Route: 058
     Dates: start: 20190403
  2. INSULIN ASPART [Suspect]
     Active Substance: INSULIN ASPART
     Dosage: FREQUENCY : TWICE A DAY;?
     Route: 058
     Dates: start: 20190807

REACTIONS (2)
  - Hypoglycaemia [None]
  - Sedation [None]

NARRATIVE: CASE EVENT DATE: 20220823
